FAERS Safety Report 10277243 (Version 2)
Quarter: 2014Q3

REPORT INFORMATION
  Report Type: Spontaneous
  Country: US (occurrence: US)
  Receive Date: 20140703
  Receipt Date: 20140828
  Transmission Date: 20150326
  Serious: Yes (Hospitalization, Other)
  Sender: FDA-Public Use
  Company Number: US-PFIZER INC-2014179204

PATIENT
  Age: 58 Year
  Sex: Female
  Weight: 89 kg

DRUGS (4)
  1. LYRICA [Suspect]
     Active Substance: PREGABALIN
     Dosage: 50 MG, 3X/DAY
     Route: 048
     Dates: start: 201403, end: 2014
  2. HYDROCHLOROTHIAZIDE/LISINOPRIL [Concomitant]
     Dosage: 1 DF (12.5/20 MG), DAILY
     Route: 048
  3. BENTYL [Concomitant]
     Active Substance: DICYCLOMINE HYDROCHLORIDE
     Dosage: 10 MG, 4X/DAY
     Route: 048
  4. LYRICA [Suspect]
     Active Substance: PREGABALIN
     Indication: NEUROPATHY PERIPHERAL
     Dosage: 50 MG, 3X/DAY
     Route: 048
     Dates: start: 201401

REACTIONS (2)
  - Pancreatic carcinoma [Unknown]
  - Pancreatitis [Unknown]

NARRATIVE: CASE EVENT DATE: 2014
